FAERS Safety Report 5415469-3 (Version None)
Quarter: 2007Q3

REPORT INFORMATION
  Report Type: 
  Country: None (occurrence: None)
  Receive Date: 20070815
  Receipt Date: 20070802
  Transmission Date: 20080115
  Serious: Yes (Other)
  Sender: FDA-Public Use
  Company Number: GB-ROCHE-510539

PATIENT
  Age: 61 Year
  Sex: Female
  Weight: 92 kg

DRUGS (2)
  1. XENICAL [Suspect]
     Indication: OBESITY
     Route: 048
     Dates: start: 20070716
  2. UNSPECIFIED DRUG [Concomitant]
     Indication: ANALGESIC THERAPY

REACTIONS (1)
  - RENAL DISORDER [None]
